FAERS Safety Report 5575967-9 (Version None)
Quarter: 2007Q4

REPORT INFORMATION
  Report Type: 
  Country: None (occurrence: None)
  Receive Date: 20071228
  Receipt Date: 20071220
  Transmission Date: 20080405
  Serious: Yes (Other)
  Sender: FDA-Public Use
  Company Number: PHBS2007JP20241

PATIENT
  Age: 79 Year
  Sex: Male

DRUGS (3)
  1. ZOMETA [Suspect]
     Indication: METASTASES TO BONE
     Dosage: 4 MG, UNK
     Route: 042
     Dates: start: 20070104, end: 20070913
  2. TS 1 [Concomitant]
     Indication: METASTASES TO BONE
     Dosage: 80 MG, UNK
     Route: 048
     Dates: start: 20070104
  3. FERROMIA [Concomitant]
     Indication: ANAEMIA
     Dosage: 100 MG, UNK
     Route: 048
     Dates: start: 20070104

REACTIONS (6)
  - BONE DISORDER [None]
  - IMPAIRED HEALING [None]
  - ORAL SURGERY [None]
  - OSTEOMYELITIS [None]
  - OSTEONECROSIS [None]
  - RENAL IMPAIRMENT [None]
